FAERS Safety Report 7383037-2 (Version None)
Quarter: 2011Q1

REPORT INFORMATION
  Report Type: 
  Country: None (occurrence: None)
  Receive Date: 20110330
  Receipt Date: 20110321
  Transmission Date: 20110831
  Serious: Yes (Other)
  Sender: FDA-Public Use
  Company Number: US-CEPHALON-2011001322

PATIENT
  Sex: Female

DRUGS (2)
  1. FENTORA [Suspect]
     Indication: PAIN
     Route: 002
     Dates: start: 20101201, end: 20110308
  2. HYDROCODONE BITARTRATE [Concomitant]

REACTIONS (3)
  - PALPITATIONS [None]
  - DRUG PRESCRIBING ERROR [None]
  - ANGINA PECTORIS [None]
